FAERS Safety Report 6181017-6 (Version None)
Quarter: 2009Q2

REPORT INFORMATION
  Report Type: 
  Country: None (occurrence: None)
  Receive Date: 20090506
  Receipt Date: 20090423
  Transmission Date: 20091009
  Serious: Yes (Hospitalization, Other)
  Sender: FDA-Public Use
  Company Number: JP-AMGEN-US345215

PATIENT
  Age: 62 Year
  Sex: Female

DRUGS (1)
  1. ENBREL [Suspect]
     Indication: RHEUMATOID ARTHRITIS
     Dosage: UNKNOWN
     Route: 058
     Dates: start: 20061001

REACTIONS (6)
  - COMPRESSION FRACTURE [None]
  - CONDITION AGGRAVATED [None]
  - DIABETES MELLITUS [None]
  - PARALYSIS [None]
  - PARESIS [None]
  - SENSORY DISTURBANCE [None]
